FAERS Safety Report 19409858 (Version 6)
Quarter: 2022Q2

REPORT INFORMATION
  Report Type: Report from Study
  Country: CA (occurrence: CA)
  Receive Date: 20210614
  Receipt Date: 20211125
  Transmission Date: 20220721
  Serious: Yes (Other)
  Sender: FDA-Public Use
  Company Number: CA-UCBSA-2021027996

PATIENT
  Sex: Female

DRUGS (1)
  1. NEUPRO [Suspect]
     Active Substance: ROTIGOTINE
     Indication: Restless legs syndrome
     Dosage: 3MG STRENGTH
     Route: 062
     Dates: start: 20180101

REACTIONS (3)
  - Gambling disorder [Unknown]
  - Product adhesion issue [Unknown]
  - Therapy interrupted [Unknown]
